FAERS Safety Report 8678714 (Version 3)
Quarter: 2013Q1

REPORT INFORMATION
  Report Type: Report from Study
  Country: US (occurrence: US)
  Receive Date: 20120723
  Receipt Date: 20130129
  Transmission Date: 20140127
  Serious: Yes (Other)
  Sender: FDA-Public Use
  Company Number: US-ABBOTT-12P-163-0957692-00

PATIENT
  Sex: Male
  Weight: 90.8 kg

DRUGS (4)
  1. HUMIRA 40 MG/0.8 ML PEN [Suspect]
     Indication: RHEUMATOID ARTHRITIS
     Route: 058
     Dates: start: 201201
  2. CELEBREX [Concomitant]
     Indication: RHEUMATOID ARTHRITIS
  3. METHOTREXATE [Concomitant]
     Indication: RHEUMATOID ARTHRITIS
  4. FOLIC ACID [Concomitant]
     Indication: VITAMIN SUPPLEMENTATION

REACTIONS (8)
  - Carpal tunnel syndrome [Recovering/Resolving]
  - Nerve compression [Recovering/Resolving]
  - Staphylococcal infection [Unknown]
  - Injection site scab [Recovered/Resolved]
  - Rheumatoid arthritis [Recovered/Resolved]
  - Pruritus [Unknown]
  - Middle insomnia [Unknown]
  - Pruritus [Unknown]
